FAERS Safety Report 5267112-4 (Version None)
Quarter: 2007Q1

REPORT INFORMATION
  Report Type: 
  Country: None (occurrence: None)
  Receive Date: 20070316
  Receipt Date: 20070308
  Transmission Date: 20070707
  Serious: Yes (Hospitalization)
  Sender: FDA-Public Use
  Company Number: PHRM2007FR01021

PATIENT
  Age: 50 Year
  Sex: Male

DRUGS (1)
  1. NEORAL [Suspect]
     Indication: HEART TRANSPLANT
     Dosage: 5 G, ONCE/SINGLE
     Dates: start: 20070308

REACTIONS (3)
  - ACCIDENTAL OVERDOSE [None]
  - GASTRIC LAVAGE [None]
  - INCORRECT DOSE ADMINISTERED [None]
